FAERS Safety Report 14335297 (Version 1)
Quarter: 2017Q4

REPORT INFORMATION
  Report Type: Spontaneous
  Country: CA (occurrence: CA)
  Receive Date: 20171229
  Receipt Date: 20171229
  Transmission Date: 20180321
  Serious: Yes (Hospitalization, Other)
  Sender: FDA-Public Use
  Company Number: CA-ALEMBIC PHARMACUETICALS LIMITED-2017SCAL001000

PATIENT

DRUGS (6)
  1. AMIODARONE [Concomitant]
     Active Substance: AMIODARONE
     Dosage: 600 MG, QD (MAINTENANCE DOSE)
  2. DIGOXIN. [Concomitant]
     Active Substance: DIGOXIN
     Dosage: 0.5 MG, QD (MAINTENANCE DOSE)
  3. AMIODARONE [Concomitant]
     Active Substance: AMIODARONE
     Indication: SUPRAVENTRICULAR TACHYARRHYTHMIA
     Dosage: 1.2 G, QD  (LOADING DOSE)
     Route: 048
  4. FLECAINIDE [Concomitant]
     Active Substance: FLECAINIDE
     Indication: SUPRAVENTRICULAR TACHYARRHYTHMIA
     Dosage: 100 MG, TID
     Route: 065
  5. METOPROLOL TARTRATE. [Suspect]
     Active Substance: METOPROLOL TARTRATE
     Indication: ATRIAL TACHYCARDIA
     Dosage: 100 MG, BID
     Route: 065
  6. DIGOXIN. [Concomitant]
     Active Substance: DIGOXIN
     Indication: SUPRAVENTRICULAR TACHYARRHYTHMIA
     Dosage: 1.5 MG, QD (LOADING DOSE)
     Route: 065

REACTIONS (3)
  - Drug ineffective [Unknown]
  - Foetal tachyarrhythmia [Recovering/Resolving]
  - Maternal exposure during pregnancy [Unknown]
